FAERS Safety Report 18174948 (Version 1)
Quarter: 2020Q3

REPORT INFORMATION
  Report Type: Spontaneous
  Country: US (occurrence: US)
  Receive Date: 20200820
  Receipt Date: 20200820
  Transmission Date: 20201103
  Serious: Yes (Other)
  Sender: FDA-Public Use
  Company Number: None

PATIENT
  Age: 80 Year
  Sex: Male
  Weight: 74.7 kg

DRUGS (5)
  1. DIPHENHYDRAMINE  50 MG PO PRIOR INF. [Concomitant]
  2. MAPAP 1000MG  PO PRIOR IVIG [Concomitant]
  3. GAMUNEX?C [Suspect]
     Active Substance: HUMAN IMMUNOGLOBULIN G
     Indication: MYASTHENIA GRAVIS
     Dosage: ?          OTHER FREQUENCY:ONCE A MONTH;?
     Route: 042
     Dates: start: 20181025
  4. SOLUMEDROL 125MG IV 30 MIN PRIOR TO IVG [Concomitant]
  5. GAMUNEX?C [Suspect]
     Active Substance: HUMAN IMMUNOGLOBULIN G
     Indication: MYASTHENIA GRAVIS
     Dosage: ?          OTHER FREQUENCY:ONCE PER MONTH;?
     Route: 042
     Dates: start: 20181025

REACTIONS (3)
  - Infusion related reaction [None]
  - Pruritus [None]
  - Urticaria [None]

NARRATIVE: CASE EVENT DATE: 20200818
